FAERS Safety Report 15165970 (Version 2)
Quarter: 2018Q3

REPORT INFORMATION
  Report Type: Report from Study
  Country: CA (occurrence: CA)
  Receive Date: 20180719
  Receipt Date: 20180725
  Transmission Date: 20181010
  Serious: Yes (Hospitalization, Other)
  Sender: FDA-Public Use
  Company Number: CA-GLAXOSMITHKLINE-CA2018GSK125716

PATIENT
  Sex: Male

DRUGS (1)
  1. MEPOLIZUMAB [Suspect]
     Active Substance: MEPOLIZUMAB
     Indication: ASTHMA
     Dosage: 100 MG, Z
     Route: 042
     Dates: start: 20180419

REACTIONS (6)
  - Tremor [Recovering/Resolving]
  - Emotional distress [Recovering/Resolving]
  - Blood pressure increased [Recovered/Resolved]
  - Suicidal ideation [Recovering/Resolving]
  - Respiratory rate increased [Recovered/Resolved]
  - Crying [Unknown]
